FAERS Safety Report 9650431 (Version 1)
Quarter: 2013Q4

REPORT INFORMATION
  Report Type: Spontaneous
  Country: DE (occurrence: DE)
  Receive Date: 20131028
  Receipt Date: 20131028
  Transmission Date: 20140711
  Serious: Yes (Life-Threatening, Hospitalization, Congenital Anomaly)
  Sender: FDA-Public Use
  Company Number: DE-ROCHE-1289777

PATIENT
  Age: 1 Day
  Sex: Male
  Weight: .04 kg

DRUGS (7)
  1. RITUXIMAB [Suspect]
     Indication: PRODUCT USED FOR UNKNOWN INDICATION
     Dosage: 375 MG/M2
     Route: 064
     Dates: start: 20120423, end: 20120521
  2. DECORTIN H [Suspect]
     Indication: PRODUCT USED FOR UNKNOWN INDICATION
     Route: 064
     Dates: start: 20120423, end: 20120521
  3. FORTECORTIN [Suspect]
     Indication: PRODUCT USED FOR UNKNOWN INDICATION
     Dosage: 16 MG/D TO 12 MG/D TO 4 MG/D
     Route: 064
     Dates: start: 20120405, end: 20120601
  4. PARACETAMOL [Concomitant]
     Route: 064
     Dates: start: 20120423, end: 20120521
  5. FENISTIL (GERMANY) [Concomitant]
     Route: 064
     Dates: start: 20120423, end: 20120521
  6. L-THYROXIN [Concomitant]
     Route: 064
     Dates: start: 20120423, end: 20120601
  7. RANITIC [Concomitant]
     Route: 064
     Dates: start: 20120423, end: 20120601

REACTIONS (9)
  - Premature baby [Recovered/Resolved with Sequelae]
  - Patent ductus arteriosus [Recovered/Resolved]
  - Atrial septal defect [Unknown]
  - Leukopenia neonatal [Recovered/Resolved]
  - Anaemia neonatal [Recovered/Resolved]
  - Osteopenia [Unknown]
  - Hypothyroidism [Recovered/Resolved]
  - Small for dates baby [Recovering/Resolving]
  - Foetal exposure during pregnancy [Unknown]
